FAERS Safety Report 18328193 (Version 2)
Quarter: 2020Q4

REPORT INFORMATION
  Report Type: Spontaneous
  Country: JP (occurrence: JP)
  Receive Date: 20200930
  Receipt Date: 20201022
  Transmission Date: 20210113
  Serious: Yes (Other)
  Sender: FDA-Public Use
  Company Number: JP-VIFOR (INTERNATIONAL) INC.-VIT-2020-09813

PATIENT
  Age: 75 Year
  Sex: Male
  Weight: 59 kg

DRUGS (19)
  1. MIRCERA [Suspect]
     Active Substance: METHOXY POLYETHYLENE GLYCOL-EPOETIN BETA
     Indication: NEPHROGENIC ANAEMIA
     Route: 058
     Dates: start: 20190418, end: 20200730
  2. FEBURIC [Concomitant]
     Active Substance: FEBUXOSTAT
  3. BAYASPIRIN [Concomitant]
     Active Substance: ASPIRIN
  4. ARTIST [Concomitant]
     Active Substance: CARVEDILOL
  5. MIRCERA [Suspect]
     Active Substance: METHOXY POLYETHYLENE GLYCOL-EPOETIN BETA
     Route: 058
     Dates: start: 20180621
  6. MIRCERA [Suspect]
     Active Substance: METHOXY POLYETHYLENE GLYCOL-EPOETIN BETA
     Route: 058
     Dates: start: 20180412
  7. FUROSEMIDE. [Concomitant]
     Active Substance: FUROSEMIDE
  8. THYRADIN [Concomitant]
     Active Substance: LEVOTHYROXINE
     Dates: start: 20200521
  9. ESOMEPRAZOLE. [Concomitant]
     Active Substance: ESOMEPRAZOLE MAGNESIUM
  10. MIRCERA [Suspect]
     Active Substance: METHOXY POLYETHYLENE GLYCOL-EPOETIN BETA
     Route: 058
     Dates: start: 20180517
  11. MIRCERA [Suspect]
     Active Substance: METHOXY POLYETHYLENE GLYCOL-EPOETIN BETA
     Route: 058
     Dates: start: 20171102, end: 20180301
  12. SEIBULE [Concomitant]
     Active Substance: MIGLITOL
     Dates: start: 20170316
  13. SELARA [Concomitant]
     Active Substance: EPLERENONE
  14. AST 120 [Concomitant]
     Dates: start: 20200123
  15. AMLODIPINE [Concomitant]
     Active Substance: AMLODIPINE BESYLATE
  16. VICTOZA [Concomitant]
     Active Substance: LIRAGLUTIDE
     Dates: start: 20150630
  17. MIRCERA [Suspect]
     Active Substance: METHOXY POLYETHYLENE GLYCOL-EPOETIN BETA
     Route: 058
     Dates: start: 20190314
  18. SUREPOST [Concomitant]
     Active Substance: REPAGLINIDE
     Dates: start: 20150623
  19. LIVALO [Concomitant]
     Active Substance: PITAVASTATIN CALCIUM

REACTIONS (3)
  - Hypothyroidism [Not Recovered/Not Resolved]
  - Anaemia [Not Recovered/Not Resolved]
  - Therapeutic product effect decreased [Unknown]

NARRATIVE: CASE EVENT DATE: 20200730
